FAERS Safety Report 23100815 (Version 1)
Quarter: 2023Q4

REPORT INFORMATION
  Report Type: Spontaneous
  Country: US (occurrence: None)
  Receive Date: 20231021
  Receipt Date: 20231021
  Transmission Date: 20240110
  Serious: Yes (Hospitalization)
  Sender: FDA-Public Use
  Company Number: None

PATIENT
  Age: 62 Year
  Sex: Male
  Weight: 73 kg

DRUGS (1)
  1. BICTEGRAVIR\EMTRICITABINE\TENOFOVIR ALAFENAMIDE [Suspect]
     Active Substance: BICTEGRAVIR\EMTRICITABINE\TENOFOVIR ALAFENAMIDE
     Dosage: STRENGTH: 50MG/200MG/25MG?FREQUENCY : DAILY;?
     Route: 048
     Dates: start: 20221205, end: 20221209

REACTIONS (1)
  - Blood lactic acid increased [None]

NARRATIVE: CASE EVENT DATE: 20221214
